FAERS Safety Report 26182730 (Version 1)
Quarter: 2025Q4

REPORT INFORMATION
  Report Type: Report from Study
  Country: US (occurrence: US)
  Receive Date: 20251221
  Receipt Date: 20251221
  Transmission Date: 20260118
  Serious: No
  Sender: IPSEN BIOPHARMACEUTICALS, INC.
  Company Number: US-IPSEN Group, Research and Development-2025-15277

PATIENT
  Age: 32 Year
  Sex: Male

DRUGS (2)
  1. BYLVAY [Suspect]
     Active Substance: ODEVIXIBAT
     Indication: Progressive familial intrahepatic cholestasis
     Dosage: 2 CAPS 1200 MCG PER DAY INSTEAD OF THE 4?1200 MCG CAPS RECOMMENDED / CORRECT DOSE WRITTEN BY HCP ??FREQUENCY (DAILY)
     Route: 048
  2. BYLVAY [Suspect]
     Active Substance: ODEVIXIBAT
     Dosage: PATIENT SHOULD HAVE BEEN ON 3600 MCG DAILY SINCE 1/12/2025 BECAUSE HE WAS TAKING 2400 MCG BEFORE
     Route: 048
     Dates: start: 20251201

REACTIONS (3)
  - Aspartate aminotransferase increased [Unknown]
  - Alanine aminotransferase increased [Unknown]
  - Pruritus [Unknown]
